FAERS Safety Report 6248120-3 (Version None)
Quarter: 2009Q2

REPORT INFORMATION
  Report Type: 
  Country: None (occurrence: None)
  Receive Date: 20090624
  Receipt Date: 20090624
  Transmission Date: 20091009
  Serious: No
  Sender: FDA-Public Use
  Company Number: None

PATIENT
  Sex: Female
  Weight: 101.6057 kg

DRUGS (2)
  1. SERTRALINE [Suspect]
     Indication: DEPRESSION
     Dates: start: 20070304
  2. ZOLOFT [Suspect]
     Dates: start: 20070501

REACTIONS (4)
  - DEPRESSED MOOD [None]
  - DEPRESSION [None]
  - IRRITABILITY [None]
  - PRODUCT SUBSTITUTION ISSUE [None]
